FAERS Safety Report 13030180 (Version 2)
Quarter: 2017Q1

REPORT INFORMATION
  Report Type: Report from Study
  Country: US (occurrence: US)
  Receive Date: 20161215
  Receipt Date: 20170113
  Transmission Date: 20170428
  Serious: Yes (Death, Hospitalization, Disabling)
  Sender: FDA-Public Use
  Company Number: PHEH2016US032570

PATIENT
  Age: 80 Year
  Sex: Male
  Weight: 85.5 kg

DRUGS (1)
  1. ENTRESTO [Suspect]
     Active Substance: SACUBITRIL\VALSARTAN
     Indication: CARDIAC FAILURE CONGESTIVE
     Dosage: 50 MG, BID
     Route: 048
     Dates: start: 20150910

REACTIONS (3)
  - Cardiac failure congestive [Recovering/Resolving]
  - Hypotension [Recovering/Resolving]
  - Death [Fatal]

NARRATIVE: CASE EVENT DATE: 20161122
